FAERS Safety Report 9996429 (Version 3)
Quarter: 2015Q2

REPORT INFORMATION
  Report Type: Report from Study
  Country: NL (occurrence: NL)
  Receive Date: 20140311
  Receipt Date: 20150612
  Transmission Date: 20150821
  Serious: Yes (Hospitalization)
  Sender: FDA-Public Use
  Company Number: NL-GLAXOSMITHKLINE-B0975805A

PATIENT
  Age: 78 Year

DRUGS (5)
  1. OXYCODONE [Concomitant]
     Active Substance: OXYCODONE
     Dates: start: 20140303, end: 20140306
  2. HYDROCHLOROTHIAZIDE. [Concomitant]
     Active Substance: HYDROCHLOROTHIAZIDE
     Dates: start: 20140221, end: 20140306
  3. PAZOPANIB [Suspect]
     Active Substance: PAZOPANIB
     Indication: RENAL CELL CARCINOMA
     Route: 048
     Dates: start: 20140208
  4. HALDOL [Concomitant]
     Active Substance: HALOPERIDOL
     Dates: start: 20140307
  5. LORAZEPAM. [Concomitant]
     Active Substance: LORAZEPAM
     Dates: start: 20140311

REACTIONS (5)
  - Gamma-glutamyltransferase increased [Recovered/Resolved]
  - Aspartate aminotransferase increased [Recovered/Resolved]
  - Dehydration [Unknown]
  - Amnesia [Recovered/Resolved]
  - Alanine aminotransferase increased [Recovered/Resolved]

NARRATIVE: CASE EVENT DATE: 20140215
